FAERS Safety Report 23484729 (Version 4)
Quarter: 2024Q1

REPORT INFORMATION
  Report Type: Spontaneous
  Country: US (occurrence: US)
  Receive Date: 20240206
  Receipt Date: 20240312
  Transmission Date: 20240410
  Serious: Yes (Other)
  Sender: FDA-Public Use
  Company Number: US-BRISTOL-MYERS SQUIBB COMPANY-2024-015422

PATIENT
  Age: 30 Year
  Sex: Female
  Weight: 78.47 kg

DRUGS (8)
  1. THALOMID [Suspect]
     Active Substance: THALIDOMIDE
     Indication: Product used for unknown indication
     Dosage: FREQ : ONCE EVERY NIGHT
     Route: 050
     Dates: start: 202310
  2. THALOMID [Suspect]
     Active Substance: THALIDOMIDE
     Route: 050
     Dates: start: 2023
  3. THALOMID [Suspect]
     Active Substance: THALIDOMIDE
     Dosage: FREQ : ONCE EVERY NIGHT
     Route: 050
     Dates: start: 20231228, end: 20240125
  4. IRON [Concomitant]
     Active Substance: IRON
     Indication: Prenatal care
     Route: 048
     Dates: start: 20240104
  5. PFIZER-BIONTECH COVID-19 VACCINE [Concomitant]
     Active Substance: TOZINAMERAN
     Indication: COVID-19 prophylaxis
     Dosage: MRNA AGES 12 AND UP (19-OCT-2023), LNP-S, PF, TRIS-SUCROSE, 30 MCG/0.3 ML, AMOUNT: 0.3 ML, SITE: DEL
     Route: 030
     Dates: start: 20240213
  6. INFLUENZA VIRUS VACCINE QUADRIVALENT TYPE A+B [Concomitant]
     Active Substance: INFLUENZA VIRUS VACCINE QUADRIVALENT TYPE A+B
     Indication: Antiviral prophylaxis
     Dosage: INACTIVATED INFLUENZA (16-AUG-2021), INJECTABLE QUADRIVALENT, AMOUNT: 0.5 ML, SITE: DELTOID LEFT, SA
     Route: 030
     Dates: start: 20240104
  7. VITAMINS NOS [Concomitant]
     Active Substance: VITAMINS
     Indication: Prenatal care
     Route: 048
     Dates: start: 20240104
  8. INFLUENZA VIRUS VACCINE [Concomitant]
     Active Substance: INFLUENZA VIRUS VACCINE
     Indication: Antiviral prophylaxis
     Dates: start: 2023

REACTIONS (10)
  - Exposure via body fluid [Unknown]
  - Pregnancy with contraceptive device [Unknown]
  - Maternal pre-pregnancy obesity [Unknown]
  - Gynaecological chlamydia infection [Unknown]
  - Morning sickness [Unknown]
  - Gonorrhoea [Unknown]
  - Herpes virus infection [Unknown]
  - High risk pregnancy [Unknown]
  - Gastrooesophageal reflux disease [Unknown]
  - Exposure to communicable disease [Unknown]

NARRATIVE: CASE EVENT DATE: 20240108
